FAERS Safety Report 13758428 (Version 2)
Quarter: 2017Q4

REPORT INFORMATION
  Report Type: Spontaneous
  Country: US (occurrence: US)
  Receive Date: 20170717
  Receipt Date: 20171011
  Transmission Date: 20180320
  Serious: No
  Sender: FDA-Public Use
  Company Number: US-GLENMARK PHARMACEUTICALS-2017GMK027542

PATIENT

DRUGS (2)
  1. NYSTATIN AND TRIAMCINOLONE ACETONIDE OINTMENT USP [Suspect]
     Active Substance: NYSTATIN\TRIAMCINOLONE ACETONIDE
     Indication: BACK PAIN
     Dosage: 1 DF, BID
     Route: 061
     Dates: start: 20170331, end: 20170331
  2. NYSTATIN AND TRIAMCINOLONE ACETONIDE OINTMENT USP [Suspect]
     Active Substance: NYSTATIN\TRIAMCINOLONE ACETONIDE
     Indication: PRURITUS

REACTIONS (6)
  - Hypersensitivity [Not Recovered/Not Resolved]
  - Back pain [Unknown]
  - Pruritus [Unknown]
  - Drug ineffective for unapproved indication [Unknown]
  - Rash [Not Recovered/Not Resolved]
  - Skin discolouration [Not Recovered/Not Resolved]

NARRATIVE: CASE EVENT DATE: 20170331
